FAERS Safety Report 5272507-9 (Version None)
Quarter: 2007Q1

REPORT INFORMATION
  Report Type: 
  Country: None (occurrence: None)
  Receive Date: 20070322
  Receipt Date: 20060713
  Transmission Date: 20070707
  Serious: No
  Sender: FDA-Public Use
  Company Number: US-BRISTOL-MYERS SQUIBB COMPANY-13442413

PATIENT
  Age: 33 Year
  Sex: Male
  Weight: 73 kg

DRUGS (1)
  1. KENALOG [Suspect]
     Indication: SEASONAL ALLERGY
     Route: 030
     Dates: start: 20060602, end: 20060602

REACTIONS (11)
  - ARTHRALGIA [None]
  - DEPRESSED MOOD [None]
  - DISSOCIATION [None]
  - HEADACHE [None]
  - HYPERHIDROSIS [None]
  - INSOMNIA [None]
  - PAIN IN JAW [None]
  - PHOTOPHOBIA [None]
  - PSYCHOMOTOR HYPERACTIVITY [None]
  - THINKING ABNORMAL [None]
  - VISION BLURRED [None]
